FAERS Safety Report 14896286 (Version 1)
Quarter: 2018Q2

REPORT INFORMATION
  Report Type: Spontaneous
  Country: PT (occurrence: PT)
  Receive Date: 20180515
  Receipt Date: 20180515
  Transmission Date: 20180711
  Serious: Yes (Congenital Anomaly, Other)
  Sender: FDA-Public Use
  Company Number: PT-BRISTOL-MYERS SQUIBB COMPANY-BMS-2018-041478

PATIENT
  Sex: Male

DRUGS (1)
  1. WARFARIN SODIUM. [Suspect]
     Active Substance: WARFARIN SODIUM
     Indication: PRODUCT USED FOR UNKNOWN INDICATION
     Dosage: 5 MG, QD
     Route: 064

REACTIONS (10)
  - Congenital nose malformation [Recovering/Resolving]
  - Epiphyseal disorder [Recovering/Resolving]
  - Feeding disorder [Recovering/Resolving]
  - Stenosis [Recovering/Resolving]
  - Foetal warfarin syndrome [Recovering/Resolving]
  - Respiratory distress [Recovering/Resolving]
  - Dysmorphism [Recovering/Resolving]
  - Ventricular septal defect [Unknown]
  - Foetal exposure during pregnancy [Unknown]
  - Hypotonia [Recovering/Resolving]
